FAERS Safety Report 4338979-9 (Version None)
Quarter: 2004Q2

REPORT INFORMATION
  Report Type: 
  Country: None (occurrence: None)
  Receive Date: 20040409
  Receipt Date: 20040331
  Transmission Date: 20050107
  Serious: Yes (Hospitalization)
  Sender: FDA-Public Use
  Company Number: 04P-163-0255506-00

PATIENT
  Age: 76 Year
  Sex: Female
  Weight: 63.05 kg

DRUGS (3)
  1. HUMIRA 40 MG/  0.8 ML PRE-FILLED SYRINGE (HUMIRA) (ADALIMUMAB) [Suspect]
     Indication: RHEUMATOID ARTHRITIS
     Dosage: 40 MG, 1 IN 2 WK, SUBCUTANEOUS
     Route: 058
     Dates: start: 20040101, end: 20040101
  2. METHOTREXATE [Concomitant]
  3. HYDROCODONE [Concomitant]

REACTIONS (5)
  - CARDIAC DISORDER [None]
  - DEPRESSION [None]
  - DYSPNOEA [None]
  - RASH PRURITIC [None]
  - SWELLING [None]
